FAERS Safety Report 9683760 (Version 1)
Quarter: 2013Q4

REPORT INFORMATION
  Report Type: Spontaneous
  Country: US (occurrence: US)
  Receive Date: 20131112
  Receipt Date: 20131112
  Transmission Date: 20140711
  Serious: Yes (Life-Threatening, Hospitalization)
  Sender: FDA-Public Use
  Company Number: US-BRISTOL-MYERS SQUIBB COMPANY-19772979

PATIENT
  Sex: Female

DRUGS (1)
  1. SPRYCEL [Suspect]

REACTIONS (1)
  - Pulmonary oedema [Recovered/Resolved]
